FAERS Safety Report 9210404 (Version 1)
Quarter: 2013Q2

REPORT INFORMATION
  Report Type: Spontaneous
  Country: US (occurrence: US)
  Receive Date: 20130404
  Receipt Date: 20130404
  Transmission Date: 20140414
  Serious: Yes (Other)
  Sender: FDA-Public Use
  Company Number: PHEH2013US007592

PATIENT
  Sex: Female

DRUGS (3)
  1. DIOVAN [Suspect]
     Dosage: 80 MG, PER DAY
  2. VITAMIN D3 [Concomitant]
  3. NYAL LOW DOSE ASPIRIN [Concomitant]

REACTIONS (2)
  - Incisional hernia [Unknown]
  - Hypotension [Unknown]
